FAERS Safety Report 15143801 (Version 1)
Quarter: 2018Q3

REPORT INFORMATION
  Report Type: Spontaneous
  Country: US (occurrence: US)
  Receive Date: 20180713
  Receipt Date: 20180713
  Transmission Date: 20181010
  Serious: Yes (Other)
  Sender: FDA-Public Use
  Company Number: US-ASTRAZENECA-2018SE87780

PATIENT
  Age: 1074 Month
  Sex: Female
  Weight: 77.1 kg

DRUGS (1)
  1. BRILINTA [Suspect]
     Active Substance: TICAGRELOR
     Indication: ARTERIAL OCCLUSIVE DISEASE
     Route: 048
     Dates: start: 201802, end: 201802

REACTIONS (9)
  - Deafness transitory [Recovered/Resolved]
  - Hypoacusis [Not Recovered/Not Resolved]
  - Dyspnoea [Not Recovered/Not Resolved]
  - Off label use [Unknown]
  - Product use in unapproved indication [Unknown]
  - Off label use [Unknown]
  - Hallucination [Unknown]
  - Fatigue [Unknown]
  - Loss of consciousness [Unknown]

NARRATIVE: CASE EVENT DATE: 201802
